FAERS Safety Report 6441565-8 (Version None)
Quarter: 2009Q4

REPORT INFORMATION
  Report Type: 
  Country: None (occurrence: None)
  Receive Date: 20091116
  Receipt Date: 20091110
  Transmission Date: 20100525
  Serious: Yes (Hospitalization)
  Sender: FDA-Public Use
  Company Number: US-GENENTECH-291141

PATIENT
  Sex: Male
  Weight: 122 kg

DRUGS (6)
  1. RITUXAN [Suspect]
     Indication: DIFFUSE LARGE B-CELL LYMPHOMA
     Dosage: 887 MG, Q2W
     Route: 042
     Dates: start: 20090714
  2. CYTOXAN [Suspect]
     Indication: NON-HODGKIN'S LYMPHOMA
     Dosage: 750 MG/M2, ^DAY 1^
     Route: 042
     Dates: start: 20090714
  3. ADRIAMYCIN PFS [Suspect]
     Indication: NON-HODGKIN'S LYMPHOMA
     Dosage: 50 MG/M2, ^DAY 1^
     Route: 042
     Dates: start: 20090714
  4. VINCRISTINE [Suspect]
     Indication: NON-HODGKIN'S LYMPHOMA
     Dosage: 1.4 MG/M2, ^DAY 1^
     Route: 042
     Dates: start: 20090714
  5. PREDNISONE [Concomitant]
     Indication: NON-HODGKIN'S LYMPHOMA
     Dosage: 100 MG, DAYS 1-5
     Dates: start: 20090714
  6. NEULASTA [Concomitant]
     Indication: DRUG USE FOR UNKNOWN INDICATION
     Dosage: 6 MG, ^DAY 2^
     Route: 058
     Dates: start: 20090715, end: 20090729

REACTIONS (1)
  - FEBRILE NEUTROPENIA [None]
